FAERS Safety Report 5973702-3 (Version None)
Quarter: 2008Q4

REPORT INFORMATION
  Report Type: 
  Country: None (occurrence: None)
  Receive Date: 20081201
  Receipt Date: 20081031
  Transmission Date: 20090506
  Serious: Yes (Life-Threatening, Hospitalization, Disabling)
  Sender: FDA-Public Use
  Company Number: HT-B.I. PHARMACEUTICALS,INC./RIDGEFIELD-2008-SI-00002SI

PATIENT
  Sex: Female
  Weight: 60 kg

DRUGS (4)
  1. VIRAMUNE [Suspect]
     Indication: PROPHYLAXIS AGAINST HIV INFECTION
     Dosage: 400MG
     Route: 048
     Dates: start: 20080820, end: 20080913
  2. COMBIVIR [Concomitant]
     Indication: PROPHYLAXIS AGAINST HIV INFECTION
  3. CHLOROQUINE PHOSPHATE [Concomitant]
     Indication: MALARIA
     Route: 048
  4. CONTRACEPTIVES NOS [Concomitant]
     Indication: ORAL CONTRACEPTION
     Route: 048

REACTIONS (8)
  - ABDOMINAL PAIN [None]
  - HEPATIC ENZYME INCREASED [None]
  - HEPATIC FAILURE [None]
  - JAUNDICE [None]
  - NAUSEA [None]
  - OEDEMA [None]
  - PERITONITIS BACTERIAL [None]
  - PYREXIA [None]
